FAERS Safety Report 4449358-8 (Version None)
Quarter: 2004Q3

REPORT INFORMATION
  Report Type: 
  Country: None (occurrence: None)
  Receive Date: 20040910
  Receipt Date: 20040830
  Transmission Date: 20050211
  Serious: Yes (Hospitalization)
  Sender: FDA-Public Use
  Company Number: 2004UW18411

PATIENT
  Age: 65 Year
  Sex: Male

DRUGS (9)
  1. IRESSA [Suspect]
     Indication: NON-SMALL CELL LUNG CANCER
     Dosage: 1500 MG PO
     Route: 048
     Dates: start: 20040818, end: 20040819
  2. DOCETAXEL [Suspect]
     Dates: start: 20040820
  3. LIPITOR [Concomitant]
  4. COZAAR [Concomitant]
  5. LASIX [Concomitant]
  6. ALDACTONE [Concomitant]
  7. FOLIC ACID [Concomitant]
  8. ASPIRIN [Concomitant]
  9. DECADRON [Concomitant]

REACTIONS (5)
  - BILIARY DILATATION [None]
  - CHOLELITHIASIS [None]
  - FEBRILE NEUTROPENIA [None]
  - HYPERBILIRUBINAEMIA [None]
  - WHITE BLOOD CELL COUNT DECREASED [None]
